FAERS Safety Report 26202844 (Version 1)
Quarter: 2025Q4

REPORT INFORMATION
  Report Type: Spontaneous
  Country: JP (occurrence: JP)
  Receive Date: 20251226
  Receipt Date: 20251226
  Transmission Date: 20260118
  Serious: Yes (Hospitalization, Other)
  Sender: ABBVIE
  Company Number: JP-ABBVIE-6606887

PATIENT
  Age: 40 Year

DRUGS (2)
  1. RINVOQ [Suspect]
     Active Substance: UPADACITINIB
     Indication: Rheumatoid arthritis
     Dosage: FORM STRENGTH: 7.5 MILLIGRAM
     Route: 048
  2. METHOTREXATE [Concomitant]
     Active Substance: METHOTREXATE
     Indication: Product used for unknown indication
     Route: 048

REACTIONS (5)
  - Pyrexia [Unknown]
  - Complement factor decreased [Unknown]
  - Haematological neoplasm [Unknown]
  - Blood immunoglobulin G abnormal [Unknown]
  - Blood immunoglobulin M abnormal [Unknown]

NARRATIVE: CASE EVENT DATE: 20251216
